FAERS Safety Report 8797985 (Version 1)
Quarter: 2012Q4

REPORT INFORMATION
  Report Type: 
  Country: US (occurrence: US)
  Receive Date: 20120920
  Receipt Date: 20120920
  Transmission Date: 20130627
  Serious: Yes (Hospitalization)
  Sender: FDA-Public Use
  Company Number: US-BIOGENIDEC-2012BI037574

PATIENT
  Sex: Female

DRUGS (1)
  1. AVONEX [Suspect]
     Indication: MULTIPLE SCLEROSIS
     Route: 030
     Dates: start: 20080301

REACTIONS (16)
  - Kidney infection [Unknown]
  - Urinary tract infection [Unknown]
  - Hypoaesthesia [Unknown]
  - Panic attack [Unknown]
  - Dehydration [Unknown]
  - Cystitis [Unknown]
  - Musculoskeletal disorder [Unknown]
  - General symptom [Unknown]
  - Amnesia [Unknown]
  - Personality disorder [Unknown]
  - Memory impairment [Unknown]
  - Malaise [Unknown]
  - Musculoskeletal stiffness [Unknown]
  - Pain [Unknown]
  - Paraesthesia [Unknown]
  - Pyrexia [Unknown]
